FAERS Safety Report 9171550 (Version 3)
Quarter: 2013Q3

REPORT INFORMATION
  Report Type: Spontaneous
  Country: US (occurrence: US)
  Receive Date: 20130319
  Receipt Date: 20130905
  Transmission Date: 20140515
  Serious: Yes (Other)
  Sender: FDA-Public Use
  Company Number: US-GLAXOSMITHKLINE-A1016243A

PATIENT
  Age: 65 Year
  Sex: Female

DRUGS (1)
  1. TYKERB [Suspect]
     Indication: BREAST CANCER
     Dosage: 1250MG PER DAY
     Route: 065

REACTIONS (5)
  - Nephrolithiasis [Unknown]
  - Hepatic steatosis [Unknown]
  - Ill-defined disorder [Unknown]
  - Cholelithiasis [Unknown]
  - Lymphadenopathy [Unknown]
